FAERS Safety Report 6108442-3 (Version None)
Quarter: 2009Q1

REPORT INFORMATION
  Report Type: 
  Country: None (occurrence: None)
  Receive Date: 20090309
  Receipt Date: 20090225
  Transmission Date: 20090719
  Serious: Yes (Other)
  Sender: FDA-Public Use
  Company Number: US-PFIZER INC-2009176093

PATIENT
  Sex: Female
  Weight: 131.52 kg

DRUGS (17)
  1. LYRICA [Suspect]
     Indication: BORDERLINE PERSONALITY DISORDER
     Dosage: UNK
     Route: 048
  2. LYRICA [Suspect]
     Indication: AFFECTIVE DISORDER
  3. LYRICA [Suspect]
     Indication: OBSESSIVE-COMPULSIVE DISORDER
  4. LYRICA [Suspect]
     Indication: MAJOR DEPRESSION
  5. GABAPENTIN [Suspect]
     Indication: BORDERLINE PERSONALITY DISORDER
     Dosage: 300 MG, 1X/DAY
     Route: 048
     Dates: start: 20090101, end: 20090224
  6. GABAPENTIN [Suspect]
     Indication: AFFECTIVE DISORDER
  7. GABAPENTIN [Suspect]
     Indication: OBSESSIVE-COMPULSIVE DISORDER
  8. GABAPENTIN [Suspect]
     Indication: MAJOR DEPRESSION
  9. DRUG, UNSPECIFIED [Suspect]
     Dosage: UNK
     Dates: start: 20090101, end: 20090101
  10. GEODON [Concomitant]
     Dosage: UNK
  11. LITHIUM CARBONATE [Concomitant]
     Dosage: UNK
  12. LAMICTAL [Concomitant]
     Dosage: UNK
  13. ZOLOFT [Concomitant]
     Dosage: UNK
  14. GLIMEPIRIDE [Concomitant]
     Dosage: UNK
  15. METFORMIN [Concomitant]
     Dosage: UNK
  16. CLONAZEPAM [Concomitant]
     Dosage: UNK
  17. ALBUTEROL [Concomitant]
     Dosage: UNK

REACTIONS (5)
  - DYSPNOEA [None]
  - HOT FLUSH [None]
  - ILL-DEFINED DISORDER [None]
  - LIP DISCOLOURATION [None]
  - MALAISE [None]
